FAERS Safety Report 9133833 (Version 1)
Quarter: 2013Q1

REPORT INFORMATION
  Report Type: Spontaneous
  Country: US (occurrence: US)
  Receive Date: 20130303
  Receipt Date: 20130303
  Transmission Date: 20140127
  Serious: No
  Sender: FDA-Public Use
  Company Number: US-ENDO PHARMACEUTICALS INC.-VANT20120004

PATIENT
  Age: 79 Year
  Sex: Male
  Weight: 88.53 kg

DRUGS (2)
  1. VANTAS [Suspect]
     Indication: PROSTATE CANCER
     Route: 058
  2. VANTAS [Suspect]
     Route: 058
     Dates: start: 20111209, end: 20120103

REACTIONS (7)
  - Procedural complication [Unknown]
  - Implant site erythema [Unknown]
  - Local swelling [Unknown]
  - Erythema [Unknown]
  - Tenderness [Unknown]
  - Joint swelling [Unknown]
  - Device extrusion [Unknown]
